FAERS Safety Report 14492583 (Version 1)
Quarter: 2018Q1

REPORT INFORMATION
  Report Type: Spontaneous
  Country: RU (occurrence: RU)
  Receive Date: 20180206
  Receipt Date: 20180206
  Transmission Date: 20180509
  Serious: Yes (Hospitalization)
  Sender: FDA-Public Use
  Company Number: RU-AKRON, INC.-2041483

PATIENT
  Age: 70 Year
  Sex: Male

DRUGS (1)
  1. ZIOPTAN [Suspect]
     Active Substance: TAFLUPROST
     Route: 047

REACTIONS (3)
  - Conjunctivitis allergic [Recovered/Resolved]
  - Eye pruritus [Recovered/Resolved]
  - Conjunctival follicles [Recovered/Resolved]

NARRATIVE: CASE EVENT DATE: 20170914
